FAERS Safety Report 12392337 (Version 4)
Quarter: 2016Q2

REPORT INFORMATION
  Report Type: Report from Study
  Country: US (occurrence: US)
  Receive Date: 20160523
  Receipt Date: 20160630
  Transmission Date: 20160815
  Serious: Yes (Hospitalization, Disabling, Other)
  Sender: FDA-Public Use
  Company Number: US-GILEAD-2016-0212328

PATIENT
  Age: 63 Year
  Sex: Female

DRUGS (18)
  1. POTASSIUM CHLORIDE. [Concomitant]
     Active Substance: POTASSIUM CHLORIDE
  2. METOCLOPRAMIDE. [Concomitant]
     Active Substance: METOCLOPRAMIDE
  3. METOPROLOL. [Concomitant]
     Active Substance: METOPROLOL
  4. AMBRISENTAN [Suspect]
     Active Substance: AMBRISENTAN
     Indication: PULMONARY ARTERIAL HYPERTENSION
     Dosage: 10 MG, QD
     Route: 048
     Dates: start: 20160328
  5. ALDACTONE [Concomitant]
     Active Substance: SPIRONOLACTONE
  6. PRILOSEC [Concomitant]
     Active Substance: OMEPRAZOLE MAGNESIUM
  7. AMBRISENTAN [Suspect]
     Active Substance: AMBRISENTAN
     Dosage: 5 MG, QD
     Route: 065
  8. CHOLECALCIFEROL [Concomitant]
     Active Substance: CHOLECALCIFEROL
  9. TOUJEO [Concomitant]
     Active Substance: INSULIN GLARGINE
  10. VITAMIN D                          /00107901/ [Concomitant]
     Active Substance: ERGOCALCIFEROL
  11. XANAX [Concomitant]
     Active Substance: ALPRAZOLAM
  12. OXYGEN. [Concomitant]
     Active Substance: OXYGEN
  13. ASPIRIN                            /00002701/ [Concomitant]
     Active Substance: ASPIRIN
  14. GABAPENTIN. [Concomitant]
     Active Substance: GABAPENTIN
  15. DIFLUCAN [Concomitant]
     Active Substance: FLUCONAZOLE
  16. LASIX [Concomitant]
     Active Substance: FUROSEMIDE
  17. NOVOLOG [Concomitant]
     Active Substance: INSULIN ASPART
  18. LOSARTAN. [Concomitant]
     Active Substance: LOSARTAN

REACTIONS (8)
  - Oxygen saturation decreased [Recovered/Resolved]
  - Lung infection [Unknown]
  - Wrong technique in product usage process [Unknown]
  - Heart rate increased [Unknown]
  - Pneumonia [Unknown]
  - Heart rate irregular [Recovered/Resolved]
  - Blood glucose decreased [Unknown]
  - Pulmonary oedema [Unknown]

NARRATIVE: CASE EVENT DATE: 201604
